FAERS Safety Report 4889644-0 (Version None)
Quarter: 2006Q1

REPORT INFORMATION
  Report Type: 
  Country: None (occurrence: None)
  Receive Date: 20060124
  Receipt Date: 20060119
  Transmission Date: 20060701
  Serious: Yes (Life-Threatening, Hospitalization)
  Sender: FDA-Public Use
  Company Number: FI-GLAXOSMITHKLINE-B0407305A

PATIENT
  Age: 72 Year
  Sex: Male

DRUGS (7)
  1. AVODART [Suspect]
     Indication: MICTURITION DISORDER
     Dosage: 1CAP PER DAY
     Route: 048
     Dates: start: 20051020, end: 20060105
  2. XATRAL [Concomitant]
     Dosage: 10MG PER DAY
     Route: 048
     Dates: start: 20040519
  3. CALCIUM GLUCONATE [Concomitant]
     Route: 065
  4. CEVI-TABS [Concomitant]
     Route: 065
  5. VITAMIN B-12 [Concomitant]
     Route: 065
  6. SPESICOR [Concomitant]
     Route: 065
  7. MAREVAN [Concomitant]
     Route: 065

REACTIONS (1)
  - ATRIAL FIBRILLATION [None]
